FAERS Safety Report 4495460-4 (Version None)
Quarter: 2005Q1

REPORT INFORMATION
  Report Type: 
  Country: None (occurrence: None)
  Receive Date: 20041108
  Receipt Date: 20041029
  Transmission Date: 20050727
  Serious: Yes (Life-Threatening, Hospitalization)
  Sender: FDA-Public Use
  Company Number: 200420935GDDC

PATIENT
  Age: 77 Year
  Sex: 0
  Weight: 105 kg

DRUGS (7)
  1. ENOXAPARIN SODIUM [Suspect]
     Indication: PULMONARY EMBOLISM
     Route: 058
     Dates: start: 20041005, end: 20041010
  2. HYDROXYZINE [Concomitant]
     Indication: PRURITUS
     Route: 048
  3. TORSEMIDE [Concomitant]
     Indication: CARDIAC FAILURE
     Route: 048
  4. ENALAPRIL [Concomitant]
     Indication: CARDIAC FAILURE
     Route: 048
  5. ASPIRIN [Concomitant]
     Indication: CARDIAC FAILURE
     Route: 048
  6. CO-CARELDOPA [Concomitant]
     Indication: PARKINSON'S DISEASE
     Dosage: DOSE: 25/100 X 2
  7. PERGOLIDE MESYLATE [Concomitant]
     Route: 048

REACTIONS (5)
  - FALL [None]
  - HAEMOGLOBIN DECREASED [None]
  - INJURY [None]
  - MUSCLE HAEMORRHAGE [None]
  - RENAL FAILURE ACUTE [None]
